FAERS Safety Report 6023896-9 (Version None)
Quarter: 2008Q4

REPORT INFORMATION
  Report Type: 
  Country: None (occurrence: None)
  Receive Date: 20081230
  Receipt Date: 20081218
  Transmission Date: 20090506
  Serious: Yes (Other)
  Sender: FDA-Public Use
  Company Number: BR-PFIZER INC-2008099900

PATIENT

DRUGS (4)
  1. FRONTAL [Suspect]
     Indication: INSOMNIA
     Dosage: 0.5 MG, 1X/DAY
     Route: 048
     Dates: start: 20000101, end: 20081201
  2. MONOCORDIL [Concomitant]
  3. CRESTOR [Concomitant]
  4. SOMALGIN [Concomitant]
     Route: 065

REACTIONS (4)
  - BREAST CANCER [None]
  - CARDIAC OPERATION [None]
  - CATHETERISATION CARDIAC [None]
  - TREMOR [None]
